FAERS Safety Report 6369357-9 (Version None)
Quarter: 2009Q3

REPORT INFORMATION
  Report Type: 
  Country: None (occurrence: None)
  Receive Date: 20090917
  Receipt Date: 20090909
  Transmission Date: 20100115
  Serious: Yes (Other)
  Sender: FDA-Public Use
  Company Number: 2009S1006516

PATIENT
  Age: 70 Year
  Sex: Female

DRUGS (1)
  1. PHOSPHOSODA FLAVOR NOT SPECIFIED [Suspect]
     Indication: COLONOSCOPY
     Dosage: ; PO
     Route: 048
     Dates: start: 20080929, end: 20080929

REACTIONS (3)
  - ABDOMINAL PAIN [None]
  - PAIN IN EXTREMITY [None]
  - RENAL FAILURE CHRONIC [None]
